FAERS Safety Report 9156390 (Version 3)
Quarter: 2013Q1

REPORT INFORMATION
  Report Type: Spontaneous
  Country: BR (occurrence: None)
  Receive Date: 20130208
  Receipt Date: 20130328
  Transmission Date: 20140127
  Serious: Yes (Other)
  Sender: FDA-Public Use
  Company Number: MPS1-1000920

PATIENT
  Age: 34 Year
  Sex: Female
  Weight: 71 kg

DRUGS (2)
  1. ALDURAZYME [Suspect]
     Indication: MUCOPOLYSACCHARIDOSIS I
     Route: 042
     Dates: start: 20090709
  2. CYCLOBENZAPRINE (CYCLOBENZAPRINE) [Concomitant]

REACTIONS (8)
  - Cervical cord compression [None]
  - Thyroid mass [None]
  - Nerve compression [None]
  - Intervertebral disc degeneration [None]
  - Diarrhoea [None]
  - Musculoskeletal stiffness [None]
  - Paraesthesia [None]
  - Gastrointestinal disorder [None]
